FAERS Safety Report 19749302 (Version 1)
Quarter: 2021Q3

REPORT INFORMATION
  Report Type: Spontaneous
  Country: US (occurrence: US)
  Receive Date: 20210825
  Receipt Date: 20210825
  Transmission Date: 20211014
  Serious: Yes (Hospitalization, Disabling)
  Sender: FDA-Public Use
  Company Number: None

PATIENT
  Age: 29 Year
  Sex: Female
  Weight: 121.11 kg

DRUGS (1)
  1. NEXPLANON [Suspect]
     Active Substance: ETONOGESTREL

REACTIONS (5)
  - Mood swings [None]
  - Pregnancy with implant contraceptive [None]
  - Exposure during pregnancy [None]
  - Haemorrhage [None]
  - Migraine [None]

NARRATIVE: CASE EVENT DATE: 20170402
